FAERS Safety Report 16559847 (Version 1)
Quarter: 2019Q3

REPORT INFORMATION
  Report Type: Spontaneous
  Country: US (occurrence: US)
  Receive Date: 20190710
  Receipt Date: 20190710
  Transmission Date: 20191004
  Serious: Yes (Death)
  Sender: FDA-Public Use
  Company Number: None

PATIENT
  Sex: Male

DRUGS (13)
  1. DOK [Concomitant]
     Active Substance: DOCUSATE SODIUM
  2. ALPRAZOLAM. [Concomitant]
     Active Substance: ALPRAZOLAM
  3. SMZ TMP [Concomitant]
  4. CAPECITABINE. [Concomitant]
     Active Substance: CAPECITABINE
  5. MAPAP [Concomitant]
     Active Substance: ACETAMINOPHEN
  6. PANTOPRAZOLE [Concomitant]
     Active Substance: PANTOPRAZOLE
  7. NIFEDAPINE [Concomitant]
  8. FLUCONAZOLE. [Concomitant]
     Active Substance: FLUCONAZOLE
  9. PREDNISONE. [Concomitant]
     Active Substance: PREDNISONE
  10. GENVOYA [Suspect]
     Active Substance: COBICISTAT\ELVITEGRAVIR\EMTRICITABINE\TENOFOVIR ALAFENAMIDE FUMARATE
     Indication: ANAL CANCER
     Route: 048
     Dates: start: 20190206
  11. FEROSUL [Concomitant]
  12. HYDROCO APAP [Concomitant]
  13. BANOPHEN [Concomitant]
     Active Substance: DIPHENHYDRAMINE HYDROCHLORIDE

REACTIONS (1)
  - Death [None]
